FAERS Safety Report 9624537 (Version 2)
Quarter: 2013Q4

REPORT INFORMATION
  Report Type: Spontaneous
  Country: CA (occurrence: CA)
  Receive Date: 20131015
  Receipt Date: 20131101
  Transmission Date: 20140711
  Serious: Yes (Death)
  Sender: FDA-Public Use
  Company Number: CA-BAXTER-2013BAX039485

PATIENT
  Age: 75 Year
  Sex: Male

DRUGS (8)
  1. DIANEAL PD 101 SOLUTION WITH 0.5% DEXTROSE [Suspect]
     Indication: RENAL FAILURE
     Dosage: 1 BAG
     Route: 033
     Dates: end: 20130929
  2. DIANEAL PD 101 SOLUTION WITH 0.5% DEXTROSE [Suspect]
     Indication: PERITONEAL DIALYSIS
  3. DIANEAL PD4 SOLUTION WITH 1.5% DEXTROSE AND 2.5 MEQ/L CALCIUM [Suspect]
     Indication: RENAL FAILURE
     Dosage: 1 BAG
     Route: 033
     Dates: start: 2008, end: 20130929
  4. DIANEAL PD4 SOLUTION WITH 1.5% DEXTROSE AND 2.5 MEQ/L CALCIUM [Suspect]
     Indication: PERITONEAL DIALYSIS
  5. DIANEAL PD4 SOLUTION WITH 2.5% DEXTROSE AND 2.5 MEQ/L CALCIUM [Suspect]
     Indication: RENAL FAILURE
     Dosage: 1 BAG
     Route: 033
     Dates: start: 2008, end: 20130929
  6. DIANEAL PD4 SOLUTION WITH 2.5% DEXTROSE AND 2.5 MEQ/L CALCIUM [Suspect]
     Indication: PERITONEAL DIALYSIS
  7. EXTRANEAL [Suspect]
     Indication: RENAL FAILURE
     Dosage: 1 BAG
     Route: 033
     Dates: start: 2008, end: 20130929
  8. EXTRANEAL [Suspect]
     Indication: PERITONEAL DIALYSIS

REACTIONS (4)
  - Death [Fatal]
  - Peritoneal dialysis complication [Unknown]
  - Heart rate increased [Unknown]
  - Dehydration [Unknown]
